FAERS Safety Report 20649206 (Version 1)
Quarter: 2022Q1

REPORT INFORMATION
  Report Type: Spontaneous
  Country: JP (occurrence: JP)
  Receive Date: 20220329
  Receipt Date: 20220329
  Transmission Date: 20220423
  Serious: Yes (Other)
  Sender: FDA-Public Use
  Company Number: JP-PFIZER INC-202200428021

PATIENT
  Sex: Female

DRUGS (3)
  1. CABERGOLINE [Suspect]
     Active Substance: CABERGOLINE
  2. CIPROXAN BAYER YAKUHIN [Concomitant]
  3. CEFACLOR [Concomitant]
     Active Substance: CEFACLOR

REACTIONS (3)
  - Hypersensitivity [Unknown]
  - Seizure [Unknown]
  - Urticaria [Unknown]
